FAERS Safety Report 10974500 (Version 1)
Quarter: 2015Q1

REPORT INFORMATION
  Report Type: Spontaneous
  Country: None (occurrence: None)
  Receive Date: 20150226
  Receipt Date: 20150226
  Transmission Date: 20150721
  Serious: No
  Sender: FDA-Public Use
  Company Number: TPA2010A00099

PATIENT
  Age: 81 Year
  Sex: Female
  Weight: 108.86 kg

DRUGS (2)
  1. ULORIC [Suspect]
     Active Substance: FEBUXOSTAT
     Indication: GOUT
     Route: 048
     Dates: start: 20100104
  2. GLYBURIDE (GLIBENCLAMIDE) [Concomitant]
     Active Substance: GLYBURIDE

REACTIONS (3)
  - Joint swelling [None]
  - Feeling hot [None]
  - Abdominal discomfort [None]

NARRATIVE: CASE EVENT DATE: 20100104
